FAERS Safety Report 11403144 (Version 1)
Quarter: 2015Q3

REPORT INFORMATION
  Report Type: Spontaneous
  Country: US (occurrence: US)
  Receive Date: 20150821
  Receipt Date: 20150821
  Transmission Date: 20151125
  Serious: No
  Sender: FDA-Public Use
  Company Number: US-ROCHE-1287819

PATIENT
  Sex: Female

DRUGS (2)
  1. PEGASYS [Suspect]
     Active Substance: PEGINTERFERON ALFA-2A
     Indication: CHRONIC HEPATITIS C
     Route: 058
     Dates: start: 20131002
  2. RIBASPHERE [Suspect]
     Active Substance: RIBAVIRIN
     Indication: CHRONIC HEPATITIS C
     Dosage: DIVIDE DOSES 600/400
     Route: 048
     Dates: start: 20131002

REACTIONS (8)
  - Decreased appetite [Unknown]
  - Insomnia [Unknown]
  - Alopecia [Unknown]
  - Pain [Unknown]
  - Menstruation delayed [Unknown]
  - Dyspnoea [Unknown]
  - Influenza like illness [Unknown]
  - Chest pain [Unknown]
